FAERS Safety Report 4269841-8 (Version None)
Quarter: 2004Q1

REPORT INFORMATION
  Report Type: 
  Country: None (occurrence: None)
  Receive Date: 20040112
  Receipt Date: 20031231
  Transmission Date: 20041129
  Serious: Yes (Hospitalization)
  Sender: FDA-Public Use
  Company Number: 04P-163-0246103-00

PATIENT
  Sex: Female

DRUGS (1)
  1. HUMIRA [Suspect]
     Indication: BEHCET'S SYNDROME
     Dosage: 40 MG, 1 IN 2 WK, SUBCUTANEOUS
     Route: 058
     Dates: start: 20030101

REACTIONS (9)
  - ASTHENIA [None]
  - BLOOD CHOLESTEROL INCREASED [None]
  - BLOOD POTASSIUM DECREASED [None]
  - BLOOD TRIGLYCERIDES INCREASED [None]
  - CONVULSION [None]
  - DEHYDRATION [None]
  - MUSCLE CRAMP [None]
  - SPEECH DISORDER [None]
  - SYNCOPE [None]
